FAERS Safety Report 9782633 (Version 3)
Quarter: 2014Q1

REPORT INFORMATION
  Report Type: Report from Study
  Country: SI (occurrence: SI)
  Receive Date: 20131226
  Receipt Date: 20140130
  Transmission Date: 20141002
  Serious: Yes (Hospitalization, Other)
  Sender: FDA-Public Use
  Company Number: PHHY2013SI145713

PATIENT
  Age: 55 Year
  Sex: Female

DRUGS (1)
  1. EXTAVIA [Suspect]
     Indication: MULTIPLE SCLEROSIS
     Dosage: 1 ML, Q48H
     Route: 058
     Dates: start: 2011

REACTIONS (8)
  - Paraesthesia [Not Recovered/Not Resolved]
  - Abdominal pain upper [Not Recovered/Not Resolved]
  - Fall [Unknown]
  - Feeling abnormal [Unknown]
  - Ligament sprain [Recovering/Resolving]
  - Chills [Recovering/Resolving]
  - Hyperhidrosis [Recovering/Resolving]
  - Asthenia [Not Recovered/Not Resolved]
